FAERS Safety Report 5238524-X (Version None)
Quarter: 2007Q1

REPORT INFORMATION
  Report Type: 
  Country: None (occurrence: None)
  Receive Date: 20070215
  Receipt Date: 20070213
  Transmission Date: 20070707
  Serious: Yes (Other)
  Sender: FDA-Public Use
  Company Number: 20070107209

PATIENT
  Age: 60 Year
  Sex: Female

DRUGS (4)
  1. VALTREX [Suspect]
     Indication: DRUG USE FOR UNKNOWN INDICATION
     Route: 065
  2. TOPAMAX [Suspect]
     Indication: MIGRAINE PROPHYLAXIS
     Route: 048
     Dates: start: 20060401
  3. SYNTHROID [Concomitant]
     Dates: start: 20070101
  4. IMITREX [Concomitant]

REACTIONS (11)
  - ALOPECIA [None]
  - AMNESIA [None]
  - CONVULSION [None]
  - DECREASED APPETITE [None]
  - DISTURBANCE IN ATTENTION [None]
  - DRUG INTERACTION [None]
  - HEADACHE [None]
  - MIGRAINE [None]
  - POOR QUALITY SLEEP [None]
  - THYROID NEOPLASM [None]
  - WEIGHT DECREASED [None]
